FAERS Safety Report 20487488 (Version 3)
Quarter: 2022Q1

REPORT INFORMATION
  Report Type: Report from Study
  Country: TN (occurrence: TN)
  Receive Date: 20220218
  Receipt Date: 20220322
  Transmission Date: 20220424
  Serious: Yes (Hospitalization)
  Sender: FDA-Public Use
  Company Number: TN-ABBVIE-22K-160-4280308-00

PATIENT
  Age: 16 Year
  Sex: Female

DRUGS (4)
  1. HUMIRA [Suspect]
     Active Substance: ADALIMUMAB
     Indication: Crohn^s disease
     Route: 058
     Dates: start: 20191201, end: 20210615
  2. HUMIRA [Suspect]
     Active Substance: ADALIMUMAB
     Route: 058
     Dates: start: 20210906, end: 20211019
  3. HUMIRA [Suspect]
     Active Substance: ADALIMUMAB
     Route: 058
     Dates: start: 2021
  4. HUMIRA [Suspect]
     Active Substance: ADALIMUMAB
     Dosage: THERAPY STARTED AT THE END OF 2021
     Route: 058
     Dates: start: 2021, end: 202202

REACTIONS (4)
  - Vesicocutaneous fistula [Recovering/Resolving]
  - Abdominal pain upper [Recovering/Resolving]
  - Enterocutaneous fistula [Recovering/Resolving]
  - Omphalitis [Not Recovered/Not Resolved]

NARRATIVE: CASE EVENT DATE: 20220201
